FAERS Safety Report 5592467-0 (Version None)
Quarter: 2008Q1

REPORT INFORMATION
  Report Type: 
  Country: None (occurrence: None)
  Receive Date: 20080115
  Receipt Date: 20080107
  Transmission Date: 20080703
  Serious: Yes (Hospitalization)
  Sender: FDA-Public Use
  Company Number: SE-PFIZER INC-2008002463

PATIENT
  Sex: Male

DRUGS (2)
  1. LIPITOR [Suspect]
     Route: 048
  2. TROMBYL [Concomitant]
     Route: 048

REACTIONS (2)
  - CONNECTIVE TISSUE DISORDER [None]
  - MUSCULOSKELETAL DISORDER [None]
